FAERS Safety Report 9234083 (Version 3)
Quarter: 2013Q2

REPORT INFORMATION
  Report Type: Spontaneous
  Country: CH (occurrence: CH)
  Receive Date: 20130416
  Receipt Date: 20130607
  Transmission Date: 20140414
  Serious: Yes (Hospitalization)
  Sender: FDA-Public Use
  Company Number: CH-ROCHE-1213198

PATIENT
  Age: 39 Year
  Sex: Male
  Weight: 66 kg

DRUGS (3)
  1. MABTHERA [Suspect]
     Indication: PRODUCT USED FOR UNKNOWN INDICATION
     Route: 041
     Dates: start: 201207, end: 20121008
  2. NEUPOGEN [Suspect]
     Indication: PRODUCT USED FOR UNKNOWN INDICATION
     Route: 058
     Dates: start: 20130310, end: 20130314
  3. EMTRICITABINE/RILPIVIRINE/TENOFOVIR [Concomitant]
     Route: 048

REACTIONS (4)
  - Febrile neutropenia [Recovered/Resolved]
  - Bone pain [Recovering/Resolving]
  - Pyrexia [Unknown]
  - Influenza [Unknown]
